FAERS Safety Report 7816294-6 (Version None)
Quarter: 2011Q4

REPORT INFORMATION
  Report Type: 
  Country: None (occurrence: None)
  Receive Date: 20111016
  Receipt Date: 20111003
  Transmission Date: 20120403
  Serious: Yes (Hospitalization)
  Sender: FDA-Public Use
  Company Number: JP-MYLANLABS-2011S1020888

PATIENT
  Age: 17 Year
  Sex: Female

DRUGS (1)
  1. DIPHENHYDRAMINE HCL [Suspect]
     Indication: INTENTIONAL OVERDOSE
     Dosage: 1800MG
     Route: 065

REACTIONS (12)
  - MUSCLE RIGIDITY [None]
  - HYPERREFLEXIA [None]
  - BLOOD PRESSURE DECREASED [None]
  - DELIRIUM [None]
  - HALLUCINATIONS, MIXED [None]
  - MYOCLONUS [None]
  - INTENTIONAL OVERDOSE [None]
  - ANTICHOLINERGIC SYNDROME [None]
  - WHITE BLOOD CELL COUNT INCREASED [None]
  - SUICIDE ATTEMPT [None]
  - HYPERHIDROSIS [None]
  - BLOOD CREATINE PHOSPHOKINASE INCREASED [None]
